FAERS Safety Report 8483407-5 (Version None)
Quarter: 2012Q3

REPORT INFORMATION
  Report Type: 
  Country: None (occurrence: None)
  Receive Date: 20120702
  Receipt Date: 20120629
  Transmission Date: 20120928
  Serious: Yes (Other)
  Sender: FDA-Public Use
  Company Number: US-JNJFOC-20120611350

PATIENT
  Age: 35 Year
  Sex: Male

DRUGS (2)
  1. XARELTO [Suspect]
     Indication: THROMBOSIS PROPHYLAXIS
     Route: 048
     Dates: start: 20120401, end: 20120401
  2. XARELTO [Suspect]
     Route: 048

REACTIONS (2)
  - ANAEMIA [None]
  - DEEP VEIN THROMBOSIS [None]
